FAERS Safety Report 17148931 (Version 1)
Quarter: 2019Q4

REPORT INFORMATION
  Report Type: Spontaneous
  Country: US (occurrence: US)
  Receive Date: 20191213
  Receipt Date: 20191213
  Transmission Date: 20200122
  Serious: Yes (Hospitalization)
  Sender: FDA-Public Use
  Company Number: US-ROCHE-2492788

PATIENT
  Age: 51 Year
  Sex: Female

DRUGS (7)
  1. IPILIMUMAB [Concomitant]
     Active Substance: IPILIMUMAB
     Indication: MALIGNANT MELANOMA
     Route: 065
     Dates: start: 201901, end: 201901
  2. NIVOLUMAB [Concomitant]
     Active Substance: NIVOLUMAB
     Indication: MALIGNANT MELANOMA
  3. ENCORAFENIB [Concomitant]
     Active Substance: ENCORAFENIB
     Indication: MALIGNANT MELANOMA
     Dosage: ONGOING : NO
     Route: 065
     Dates: end: 201911
  4. DABRAFENIB [Concomitant]
     Active Substance: DABRAFENIB
     Indication: MALIGNANT MELANOMA
     Dosage: TAKING ALONG WITH TRAMETINIB 2MG ;ONGOING: NO
     Route: 048
  5. TRAMETINIB [Concomitant]
     Active Substance: TRAMETINIB
     Indication: MALIGNANT MELANOMA
     Dosage: TAKING WITH DABRAFENIB 150 MG ;ONGOING: NO
     Route: 048
  6. ZELBORAF [Suspect]
     Active Substance: VEMURAFENIB
     Indication: MALIGNANT MELANOMA
     Route: 048
     Dates: start: 20160422, end: 20160502
  7. BINIMETINIB [Concomitant]
     Active Substance: BINIMETINIB
     Indication: MALIGNANT MELANOMA
     Dosage: EVERY 12 HOURS
     Route: 065
     Dates: end: 201911

REACTIONS (4)
  - Ventricular tachycardia [Recovered/Resolved]
  - Cardiomyopathy [Recovered/Resolved]
  - Treatment failure [Unknown]
  - Cardiac failure congestive [Recovered/Resolved]

NARRATIVE: CASE EVENT DATE: 201901
